FAERS Safety Report 14359852 (Version 1)
Quarter: 2018Q1

REPORT INFORMATION
  Report Type: Spontaneous
  Country: US (occurrence: US)
  Receive Date: 20180105
  Receipt Date: 20180105
  Transmission Date: 20180509
  Serious: No
  Sender: FDA-Public Use
  Company Number: -SAAVPROD-BI2017BI023008

PATIENT
  Age: 73 Year
  Sex: Female

DRUGS (3)
  1. ESOMEPRAZOLE [Concomitant]
     Active Substance: ESOMEPRAZOLE
     Indication: PRODUCT USED FOR UNKNOWN INDICATION
     Dosage: ONCE A DAY;  FORM STRENGTH: 22.3 MG; FORMULATION: CAPSULE ACTION(S) TAKEN WITH PRODUCT: DRUG WITHDRA
     Route: 048
     Dates: start: 20170413, end: 20170420
  2. RANITIDINE HYDROCHLORIDE. [Suspect]
     Active Substance: RANITIDINE HYDROCHLORIDE
     Indication: GASTRITIS
     Dosage: ONE TO TWO TABLETS DAILY;  FORM STRENGTH: 150 MG; FORMULATION: TABLET? ADMINISTRATION CORRECT? NR(NO
     Route: 048
     Dates: start: 20170421
  3. RANITIDINE HYDROCHLORIDE. [Suspect]
     Active Substance: RANITIDINE HYDROCHLORIDE
     Indication: GASTRITIS
     Dosage: ONE TO TWO TABLETS DAILY;  FORM STRENGTH: 150 MG; FORMULATION: TABLET  ADMINISTRATION CORRECT? NR(NO
     Route: 048
     Dates: start: 2004, end: 201610

REACTIONS (9)
  - Abdominal pain upper [Unknown]
  - Medication error [Unknown]
  - Pruritus [Unknown]
  - Off label use [Unknown]
  - Pruritus [Unknown]
  - Osteopenia [Unknown]
  - Abdominal distension [Unknown]
  - Flushing [Unknown]
  - Urticaria [Unknown]

NARRATIVE: CASE EVENT DATE: 2004
